FAERS Safety Report 9840515 (Version 4)
Quarter: 2014Q2

REPORT INFORMATION
  Report Type: Report from Study
  Country: US (occurrence: US)
  Receive Date: 20140124
  Receipt Date: 20140519
  Transmission Date: 20141212
  Serious: Yes (Hospitalization)
  Sender: FDA-Public Use
  Company Number: US-UCBSA-110395

PATIENT
  Age: 34 Year
  Sex: Female
  Weight: 63.59 kg

DRUGS (16)
  1. CIMZIA [Suspect]
     Indication: CROHN^S DISEASE
     Route: 058
     Dates: start: 20100727
  2. MESALAMINE [Concomitant]
     Indication: CROHN^S DISEASE
     Dosage: DOSE UNSPECIFIED
     Dates: start: 201006
  3. FLAGYL [Concomitant]
     Indication: CROHN^S DISEASE
     Dosage: DOSE UNSPECIFIED
     Dates: start: 20110702
  4. PREDNISONE [Concomitant]
     Indication: CROHN^S DISEASE
     Dosage: DOSE UNSPECIFIED
     Dates: start: 199811
  5. METHOTREXATE [Concomitant]
     Indication: CROHN^S DISEASE
     Dosage: DOSE UNSPECIFIED
     Dates: start: 20120910
  6. METHOTREXATE [Concomitant]
     Indication: CROHN^S DISEASE
  7. GATTEX [Concomitant]
     Indication: DIARRHOEA
     Route: 058
     Dates: start: 20130601
  8. CIPRO [Concomitant]
     Indication: CAMPYLOBACTER INFECTION
     Dates: start: 200607, end: 200607
  9. CIPRO [Concomitant]
     Indication: CAMPYLOBACTER INFECTION
     Dates: start: 20120203, end: 20120630
  10. CIPRO [Concomitant]
     Indication: CAMPYLOBACTER INFECTION
     Dosage: FOR 1 WEEK
     Dates: start: 20140107, end: 20140114
  11. NORETHINDRONE [Concomitant]
     Indication: CONTRACEPTION
     Dosage: 1 DAILY
     Route: 048
     Dates: start: 20131221
  12. RECLAST [Concomitant]
     Indication: OSTEOPOROSIS
     Dosage: 5MG/1000 CC PER IV INFUSION. ONCE YEARLY
     Route: 042
  13. POTASSIUM [Concomitant]
     Indication: HYPOKALAEMIA
     Route: 048
  14. VIT B12 [Concomitant]
     Indication: ANAEMIA
     Dosage: MONTHLY
     Route: 030
  15. PHENERGAN [Concomitant]
     Indication: NAUSEA
     Dosage: 25 MG
     Route: 048
  16. FLEXERIL [Concomitant]
     Indication: MYALGIA
     Dosage: 10 MG
     Route: 048

REACTIONS (2)
  - Campylobacter infection [Recovered/Resolved]
  - Arthritis reactive [Recovered/Resolved]
